FAERS Safety Report 12911732 (Version 17)
Quarter: 2018Q4

REPORT INFORMATION
  Report Type: Spontaneous
  Country: BR (occurrence: BR)
  Receive Date: 20161104
  Receipt Date: 20181115
  Transmission Date: 20190204
  Serious: Yes (Hospitalization, Other)
  Sender: FDA-Public Use
  Company Number: BR-GLAXOSMITHKLINE-BR2016GSK144075

PATIENT
  Age: 40 Year
  Sex: Female
  Weight: 81 kg

DRUGS (16)
  1. BENLYSTA [Suspect]
     Active Substance: BELIMUMAB
     Indication: SYSTEMIC LUPUS ERYTHEMATOSUS
     Dosage: UNK UNK, CYC
     Dates: start: 20160916
  2. BENLYSTA [Suspect]
     Active Substance: BELIMUMAB
     Dosage: UNK
  3. REUQUINOL [Suspect]
     Active Substance: HYDROXYCHLOROQUINE SULFATE
     Indication: PRODUCT USED FOR UNKNOWN INDICATION
     Dosage: UNK
  4. BENLYSTA [Suspect]
     Active Substance: BELIMUMAB
     Dosage: UNK
     Dates: start: 20171010
  5. BENLYSTA [Suspect]
     Active Substance: BELIMUMAB
     Dosage: UNK
  6. BENLYSTA [Suspect]
     Active Substance: BELIMUMAB
     Dosage: 820 MG, UNK
     Dates: start: 20170410
  7. KETOPROFEN LYSINE [Concomitant]
     Active Substance: KETOPROFEN LYSINE
     Indication: PRODUCT USED FOR UNKNOWN INDICATION
     Dosage: UNK
  8. BENLYSTA [Suspect]
     Active Substance: BELIMUMAB
     Dosage: UNK, CYC
     Dates: start: 20161223
  9. BENLYSTA [Suspect]
     Active Substance: BELIMUMAB
     Dosage: UNK
     Dates: start: 20170127
  10. BENLYSTA [Suspect]
     Active Substance: BELIMUMAB
     Dosage: UNK
     Dates: start: 20170224
  11. BENLYSTA [Suspect]
     Active Substance: BELIMUMAB
     Dosage: 930 MG, UNK
     Dates: start: 20170508
  12. PREDNISONE. [Suspect]
     Active Substance: PREDNISONE
     Indication: PRODUCT USED FOR UNKNOWN INDICATION
     Dosage: UNK
  13. AZATHIOPRINE. [Concomitant]
     Active Substance: AZATHIOPRINE
     Indication: PRODUCT USED FOR UNKNOWN INDICATION
     Dosage: UNK
  14. BENLYSTA [Suspect]
     Active Substance: BELIMUMAB
     Dosage: UNK
     Dates: start: 20170804
  15. BENLYSTA [Suspect]
     Active Substance: BELIMUMAB
     Dosage: UNK
     Dates: start: 20170911
  16. BENLYSTA [Suspect]
     Active Substance: BELIMUMAB
     Dosage: UNK, CYC
     Dates: start: 20161124

REACTIONS (17)
  - Tendon rupture [Recovered/Resolved]
  - Aggression [Unknown]
  - Sinusitis [Unknown]
  - Overdose [Unknown]
  - Inappropriate schedule of product administration [Recovered/Resolved]
  - Circumstance or information capable of leading to medication error [Recovered/Resolved]
  - Arthropathy [Unknown]
  - Weight loss poor [Unknown]
  - Weight decreased [Unknown]
  - Pyelonephritis [Unknown]
  - Metabolic surgery [Unknown]
  - Tachycardia [Unknown]
  - Nausea [Recovered/Resolved]
  - Malaise [Unknown]
  - Somnolence [Unknown]
  - Product dose omission [Not Recovered/Not Resolved]
  - Asthenia [Unknown]

NARRATIVE: CASE EVENT DATE: 20180614
